FAERS Safety Report 6431641-8 (Version None)
Quarter: 2009Q4

REPORT INFORMATION
  Report Type: 
  Country: None (occurrence: None)
  Receive Date: 20091103
  Receipt Date: 20091019
  Transmission Date: 20100525
  Serious: Yes (Hospitalization)
  Sender: FDA-Public Use
  Company Number: 02100-JPN-07-0681

PATIENT
  Age: 72 Year
  Sex: Female
  Weight: 52.6 kg

DRUGS (13)
  1. PLETAL [Suspect]
     Indication: CEREBRAL INFARCTION
     Dosage: 81 MG, QD #1 ORAL; 81 MG, QD REGIMEN #2 ORAL; 81 MG, QD #3 ORAL
     Route: 048
     Dates: start: 20051101, end: 20070730
  2. PLETAL [Suspect]
     Indication: CEREBRAL INFARCTION
     Dosage: 81 MG, QD #1 ORAL; 81 MG, QD REGIMEN #2 ORAL; 81 MG, QD #3 ORAL
     Route: 048
     Dates: start: 20070810, end: 20071006
  3. PLETAL [Suspect]
     Indication: CEREBRAL INFARCTION
     Dosage: 81 MG, QD #1 ORAL; 81 MG, QD REGIMEN #2 ORAL; 81 MG, QD #3 ORAL
     Route: 048
     Dates: start: 20071102
  4. TRICHLORMETHIAZIDE [Concomitant]
  5. LOCHOL (FLUVASTATIN SODIUM) [Concomitant]
  6. ALOSENN (SENNA LEAF SENNA POD) [Concomitant]
  7. VEMAS S (DIOCYTL SODIUM SULFOSUCCINATE CASANTHRANOL) [Concomitant]
  8. HEAVY MAGNEDIUM OXIDE (MAGNESIUM OXIDE) [Concomitant]
  9. PANTOSIN (PANTETHINE) [Concomitant]
  10. DEPAS (ETIZOLAM) [Concomitant]
  11. DIOVAN [Concomitant]
  12. NORVASC [Concomitant]
  13. URINORM (BENZBROMARONE) [Concomitant]

REACTIONS (1)
  - GASTRIC CANCER [None]
